FAERS Safety Report 6691648-2 (Version None)
Quarter: 2010Q2

REPORT INFORMATION
  Report Type: 
  Country: None (occurrence: None)
  Receive Date: 20100422
  Receipt Date: 20090819
  Transmission Date: 20101027
  Serious: No
  Sender: FDA-Public Use
  Company Number: US-ASTRAZENECA-2009SE09115

PATIENT
  Age: 65 Year
  Sex: Female

DRUGS (2)
  1. METOPROLOL SUCCINATE [Suspect]
     Indication: HEART RATE ABNORMAL
     Route: 048
     Dates: start: 20020101
  2. METOPROLOL SUCCINATE [Suspect]
     Route: 048
     Dates: start: 20090601

REACTIONS (7)
  - DYSPNOEA [None]
  - HEART RATE IRREGULAR [None]
  - INITIAL INSOMNIA [None]
  - NAUSEA [None]
  - OCULAR ICTERUS [None]
  - SWOLLEN TONGUE [None]
  - WHEEZING [None]
